FAERS Safety Report 9461830 (Version 1)
Quarter: 2013Q3

REPORT INFORMATION
  Report Type: Spontaneous
  Country: US (occurrence: None)
  Receive Date: 20130815
  Receipt Date: 20130815
  Transmission Date: 20140515
  Serious: Yes (Other)
  Sender: FDA-Public Use
  Company Number: None

PATIENT
  Age: 35 Year
  Sex: Female
  Weight: 108.86 kg

DRUGS (2)
  1. CYMBALTA [Suspect]
     Indication: FIBROMYALGIA
     Dosage: 1 PILL  ONCE DAILY  TAKEN BY MOUTH
     Route: 048
     Dates: start: 20130101, end: 20130811
  2. CYMBALTA [Suspect]
     Indication: ANXIETY
     Dosage: 1 PILL  ONCE DAILY  TAKEN BY MOUTH
     Route: 048
     Dates: start: 20130101, end: 20130811

REACTIONS (10)
  - Drug withdrawal syndrome [None]
  - Paraesthesia [None]
  - Pain in extremity [None]
  - Local swelling [None]
  - Pain in extremity [None]
  - Oedema peripheral [None]
  - Exostosis [None]
  - Palpitations [None]
  - Tinnitus [None]
  - Feeling of body temperature change [None]
